FAERS Safety Report 6693785-5 (Version None)
Quarter: 2010Q2

REPORT INFORMATION
  Report Type: 
  Country: None (occurrence: None)
  Receive Date: 20100423
  Receipt Date: 20100413
  Transmission Date: 20101027
  Serious: Yes (Disabling, Other)
  Sender: FDA-Public Use
  Company Number: US-PFIZER INC-2010049648

PATIENT
  Sex: Female

DRUGS (7)
  1. GEODON [Suspect]
     Indication: BIPOLAR DISORDER
     Dosage: 80 MG/DAILY
     Dates: start: 20100101
  2. ALPRAZOLAM [Suspect]
     Dosage: 4 MG, 1X/DAY AT BEDTIME
     Dates: start: 20050101
  3. ABILIFY [Suspect]
     Indication: BIPOLAR DISORDER
     Dosage: UNK
     Dates: end: 20100101
  4. TOPAMAX [Suspect]
     Dosage: UNK
  5. CONCERTA [Concomitant]
     Indication: DEPRESSION
     Dosage: 54 MG, 1X/DAY IN THE MORNING
  6. CONCERTA [Concomitant]
     Indication: BIPOLAR DISORDER
  7. LAMICTAL [Concomitant]
     Indication: BIPOLAR DISORDER
     Dosage: 75 MG, 1X/DAY EACH MORNING

REACTIONS (5)
  - ACTIVITIES OF DAILY LIVING IMPAIRED [None]
  - ARTHRALGIA [None]
  - DYSARTHRIA [None]
  - IMPAIRED DRIVING ABILITY [None]
  - WEIGHT INCREASED [None]
